FAERS Safety Report 7187274-1 (Version None)
Quarter: 2010Q4

REPORT INFORMATION
  Report Type: 
  Country: None (occurrence: None)
  Receive Date: 20101222
  Receipt Date: 20101216
  Transmission Date: 20110411
  Serious: Yes (Hospitalization)
  Sender: FDA-Public Use
  Company Number: US-ABBOTT-10P-163-0692290-00

PATIENT
  Sex: Male
  Weight: 88.53 kg

DRUGS (4)
  1. HUMIRA [Suspect]
     Indication: CROHN'S DISEASE
     Dates: start: 20080101, end: 20080301
  2. HUMIRA [Suspect]
     Dates: start: 20080301
  3. AZULFIDINE [Suspect]
     Indication: PRODUCT USED FOR UNKNOWN INDICATION
  4. MERCAPTOPURINE [Concomitant]
     Indication: CROHN'S DISEASE
     Dosage: 125 MG DAILY

REACTIONS (6)
  - ANAEMIA [None]
  - ARTHRALGIA [None]
  - CROHN'S DISEASE [None]
  - INFECTION [None]
  - PNEUMONIA [None]
  - WEIGHT DECREASED [None]
